FAERS Safety Report 9940694 (Version 2)
Quarter: 2014Q2

REPORT INFORMATION
  Report Type: Spontaneous
  Country: US (occurrence: US)
  Receive Date: 20140303
  Receipt Date: 20140612
  Transmission Date: 20141212
  Serious: Yes (Other)
  Sender: FDA-Public Use
  Company Number: US-PFIZER INC-2014057065

PATIENT
  Age: 43 Year
  Sex: Female

DRUGS (3)
  1. LIPITOR [Suspect]
     Indication: LOW DENSITY LIPOPROTEIN INCREASED
     Dosage: 20 MG, 1X/DAY
     Route: 048
     Dates: start: 200208, end: 200511
  2. LIPITOR [Suspect]
     Indication: CARDIOVASCULAR EVENT PROPHYLAXIS
     Dosage: 10 MG, 1X/DAY
     Route: 048
     Dates: start: 200504
  3. LIPITOR [Suspect]
     Dosage: 40 MG, 1X/DAY
     Route: 048
     Dates: start: 200511, end: 20110131

REACTIONS (8)
  - Type 2 diabetes mellitus [Not Recovered/Not Resolved]
  - Diabetic ketoacidosis [Unknown]
  - Diabetic coma [Unknown]
  - Multi-organ failure [Unknown]
  - Pneumonia [Unknown]
  - Renal failure acute [Unknown]
  - Malaise [Unknown]
  - Weight decreased [Unknown]
